FAERS Safety Report 16896750 (Version 2)
Quarter: 2019Q4

REPORT INFORMATION
  Report Type: Spontaneous
  Country: ES (occurrence: ES)
  Receive Date: 20191008
  Receipt Date: 20191212
  Transmission Date: 20200122
  Serious: Yes (Other)
  Sender: FDA-Public Use
  Company Number: ES-BIOGEN-2019BI00793051

PATIENT
  Age: 43 Year
  Sex: Female

DRUGS (2)
  1. PLEGRIDY [Suspect]
     Active Substance: PEGINTERFERON BETA-1A
  2. PLEGRIDY [Suspect]
     Active Substance: PEGINTERFERON BETA-1A
     Indication: MULTIPLE SCLEROSIS
     Route: 065
     Dates: start: 20190805, end: 20190902

REACTIONS (3)
  - Multiple sclerosis relapse [Unknown]
  - Facial paralysis [Unknown]
  - Liver disorder [Unknown]

NARRATIVE: CASE EVENT DATE: 20190907
